FAERS Safety Report 4685369-5 (Version None)
Quarter: 2005Q2

REPORT INFORMATION
  Report Type: 
  Country: None (occurrence: None)
  Receive Date: 20050608
  Receipt Date: 20050602
  Transmission Date: 20051028
  Serious: Yes (Death)
  Sender: FDA-Public Use
  Company Number: US-GLAXOSMITHKLINE-A0561142A

PATIENT
  Age: 57 Year
  Sex: Male

DRUGS (2)
  1. LAMICTAL [Suspect]
     Indication: ILL-DEFINED DISORDER
     Dosage: 25MG PER DAY
     Route: 048
  2. UNKNOWN [Concomitant]

REACTIONS (1)
  - COMPLETED SUICIDE [None]
